FAERS Safety Report 4373089-6 (Version None)
Quarter: 2004Q2

REPORT INFORMATION
  Report Type: 
  Country: None (occurrence: None)
  Receive Date: 20040608
  Receipt Date: 20040527
  Transmission Date: 20050107
  Serious: Yes (Hospitalization)
  Sender: FDA-Public Use
  Company Number: US-BRISTOL-MYERS SQUIBB COMPANY-12598942

PATIENT
  Age: 64 Year
  Sex: Male
  Weight: 100 kg

DRUGS (18)
  1. CEFEPIME FOR INJ [Suspect]
     Indication: SEPSIS
     Route: 042
     Dates: start: 20040201
  2. NATRECOR [Suspect]
     Indication: CARDIAC FAILURE CONGESTIVE
     Dosage: BOLUS, FOLLOWED BY 0.01 MCG/KG/MIN
     Route: 042
     Dates: start: 20040212, end: 20040212
  3. DIGOXIN [Concomitant]
     Indication: ATRIAL FIBRILLATION
  4. ASPIRIN [Concomitant]
     Indication: CORONARY ARTERY DISEASE
  5. ZESTRIL [Concomitant]
     Indication: HYPERTENSION
     Route: 048
  6. ZESTRIL [Concomitant]
     Indication: CARDIAC FAILURE CONGESTIVE
     Route: 048
  7. LIPITOR [Concomitant]
     Indication: BLOOD CHOLESTEROL INCREASED
     Route: 048
  8. FLOMAX [Concomitant]
     Indication: BENIGN PROSTATIC HYPERPLASIA
     Route: 048
  9. TOPROL-XL [Concomitant]
     Indication: CARDIAC FAILURE CONGESTIVE
     Route: 048
  10. TOPROL-XL [Concomitant]
     Indication: HYPERTENSION
     Route: 048
  11. ZOLOFT [Concomitant]
     Indication: DEPRESSION
     Route: 048
  12. COUMADIN [Concomitant]
     Indication: ATRIAL FIBRILLATION
     Route: 048
  13. NEURONTIN [Concomitant]
     Indication: NEUROPATHY
     Route: 048
  14. LASIX [Concomitant]
     Indication: CARDIAC FAILURE CONGESTIVE
  15. INSULIN GLARGINE [Concomitant]
     Indication: DIABETES MELLITUS
     Route: 058
     Dates: start: 20040211
  16. HUMALOG [Concomitant]
     Indication: DIABETES MELLITUS
     Route: 058
  17. OXYCONTIN [Concomitant]
     Indication: PAIN
     Route: 048
  18. MILRINONE [Concomitant]
     Route: 042

REACTIONS (7)
  - CLOSTRIDIUM COLITIS [None]
  - CYSTITIS KLEBSIELLA [None]
  - HYPERGLYCAEMIA [None]
  - HYPERTENSION [None]
  - RENAL FAILURE [None]
  - STAPHYLOCOCCAL SEPSIS [None]
  - URAEMIC ENCEPHALOPATHY [None]
